FAERS Safety Report 12402447 (Version 1)
Quarter: 2016Q2

REPORT INFORMATION
  Report Type: Report from Study
  Country: BR (occurrence: BR)
  Receive Date: 20160525
  Receipt Date: 20160525
  Transmission Date: 20160815
  Serious: Yes (Other)
  Sender: FDA-Public Use
  Company Number: BR-ABBVIE-15K-020-1467115-00

PATIENT
  Age: 51 Year
  Sex: Female
  Weight: 79 kg

DRUGS (5)
  1. PREDNISON [Concomitant]
     Active Substance: PREDNISONE
     Indication: ARTHRITIS
     Route: 048
     Dates: start: 2014
  2. CHOLECALCIFEROL [Concomitant]
     Active Substance: CHOLECALCIFEROL
     Indication: PRODUCT USED FOR UNKNOWN INDICATION
     Dosage: VARIABLE DOSE (NOT SPECIFIED)
     Dates: start: 2010, end: 2015
  3. ALENDRONATE SODIUM. [Concomitant]
     Active Substance: ALENDRONATE SODIUM
     Indication: OSTEOPOROSIS
     Dates: start: 2010, end: 2015
  4. CALCIUM CITRATE [Concomitant]
     Active Substance: CALCIUM CITRATE
     Indication: PRODUCT USED FOR UNKNOWN INDICATION
  5. HUMIRA [Suspect]
     Active Substance: ADALIMUMAB
     Indication: RHEUMATOID ARTHRITIS
     Route: 058
     Dates: start: 20130701, end: 20151216

REACTIONS (14)
  - Chondrosarcoma [Unknown]
  - Spinal osteoarthritis [Unknown]
  - Tendon disorder [Unknown]
  - Vitamin D deficiency [Unknown]
  - Bone metabolism disorder [Unknown]
  - Bursitis [Unknown]
  - Bone neoplasm [Recovering/Resolving]
  - Breast mass [Unknown]
  - Chronic sinusitis [Recovering/Resolving]
  - Calcinosis [Unknown]
  - Gallbladder operation [Recovered/Resolved]
  - Vitamin E deficiency [Unknown]
  - Bone lesion [Unknown]
  - Osteoarthritis [Unknown]

NARRATIVE: CASE EVENT DATE: 2013
